FAERS Safety Report 10096705 (Version 2)
Quarter: 2014Q2

REPORT INFORMATION
  Report Type: Spontaneous
  Country: IT (occurrence: IT)
  Receive Date: 20140422
  Receipt Date: 20140422
  Transmission Date: 20141212
  Serious: Yes (Other)
  Sender: FDA-Public Use
  Company Number: PHHY2014IT042289

PATIENT
  Age: 37 Year
  Sex: Female

DRUGS (2)
  1. ESCITALOPRAM [Suspect]
     Indication: GENERALISED ANXIETY DISORDER
     Dosage: 20 MG, UNK
  2. ALPRAZOLAM [Suspect]
     Indication: GENERALISED ANXIETY DISORDER
     Dosage: 1.25 MG, UNK

REACTIONS (4)
  - Generalised anxiety disorder [Unknown]
  - Disease recurrence [Unknown]
  - Prolonged pregnancy [Unknown]
  - Maternal exposure during pregnancy [Unknown]
